FAERS Safety Report 11571777 (Version 2)
Quarter: 2016Q4

REPORT INFORMATION
  Report Type: Spontaneous
  Country: US (occurrence: US)
  Receive Date: 20150929
  Receipt Date: 20161007
  Transmission Date: 20170206
  Serious: No
  Sender: FDA-Public Use
  Company Number: US-SA-2015SA118484

PATIENT
  Age: 64 Year
  Sex: Female

DRUGS (9)
  1. AMOXICILLIN. [Concomitant]
     Active Substance: AMOXICILLIN
     Dosage: STRENGTH: 500 MG
  2. HYDROMORPHONE [Concomitant]
     Active Substance: HYDROMORPHONE
     Dosage: STRENGHT: 2 MG
  3. PRAVASTATIN. [Concomitant]
     Active Substance: PRAVASTATIN
     Dosage: STRENGTH: 10 MG
  4. CARBAMAZEPINE. [Concomitant]
     Active Substance: CARBAMAZEPINE
     Dosage: STRENGHT: 200 MG
  5. MONTELUKAST [Concomitant]
     Active Substance: MONTELUKAST SODIUM
     Dosage: STRENGTH: 10 MG
  6. TEGRETOL [Concomitant]
     Active Substance: CARBAMAZEPINE
     Dosage: XR, STRENGHT: 100 MG
  7. AUBAGIO [Suspect]
     Active Substance: TERIFLUNOMIDE
     Indication: MULTIPLE SCLEROSIS
     Route: 048
     Dates: start: 20150426
  8. GABAPENTIN. [Concomitant]
     Active Substance: GABAPENTIN
     Dosage: STRENGHT: 800 MG
  9. DULOXETINE. [Concomitant]
     Active Substance: DULOXETINE
     Dosage: STRENGHT: 30 MG

REACTIONS (2)
  - Diarrhoea [Not Recovered/Not Resolved]
  - Abdominal pain [Not Recovered/Not Resolved]

NARRATIVE: CASE EVENT DATE: 20150728
